APPROVED DRUG PRODUCT: ZYPREXA
Active Ingredient: OLANZAPINE
Strength: 20MG
Dosage Form/Route: TABLET;ORAL
Application: N020592 | Product #006 | TE Code: AB
Applicant: CHEPLAPHARM REGISTRATION GMBH
Approved: Sep 9, 1997 | RLD: Yes | RS: No | Type: RX